FAERS Safety Report 6463889-0 (Version None)
Quarter: 2009Q4

REPORT INFORMATION
  Report Type: 
  Country: None (occurrence: None)
  Receive Date: 20091201
  Receipt Date: 20091123
  Transmission Date: 20100525
  Serious: Yes (Other)
  Sender: FDA-Public Use
  Company Number: NL-ROCHE-670548

PATIENT
  Age: 40 Year
  Sex: Male

DRUGS (1)
  1. ISOTRETINOIN [Suspect]
     Indication: CELLULITIS
     Route: 048

REACTIONS (2)
  - ACNE CONGLOBATA [None]
  - HEPATIC FUNCTION ABNORMAL [None]
